FAERS Safety Report 13205219 (Version 1)
Quarter: 2017Q1

REPORT INFORMATION
  Report Type: Spontaneous
  Country: FI (occurrence: FI)
  Receive Date: 20170209
  Receipt Date: 20170209
  Transmission Date: 20170428
  Serious: Yes (Other)
  Sender: FDA-Public Use
  Company Number: FI-PFIZER INC-2017052757

PATIENT
  Age: 19 Month
  Sex: Male

DRUGS (1)
  1. REVATIO [Suspect]
     Active Substance: SILDENAFIL CITRATE
     Indication: PULMONARY HYPERTENSION
     Dosage: 0.0625-0.1 MG SINGLE DOSE
     Dates: start: 201701

REACTIONS (2)
  - Hypotension [Unknown]
  - Product use issue [Unknown]

NARRATIVE: CASE EVENT DATE: 201701
